FAERS Safety Report 4296204-1 (Version None)
Quarter: 2004Q1

REPORT INFORMATION
  Report Type: 
  Country: None (occurrence: None)
  Receive Date: 20040217
  Receipt Date: 20030916
  Transmission Date: 20041129
  Serious: Yes (Other)
  Sender: FDA-Public Use
  Company Number: US-GLAXOSMITHKLINE-A0426144A

PATIENT
  Age: 25 Year
  Sex: Female

DRUGS (3)
  1. LAMICTAL [Suspect]
     Dosage: 100MG TWICE PER DAY
     Route: 048
     Dates: start: 20030811, end: 20030825
  2. ZYRTEC [Concomitant]
  3. DEPO-PROVERA [Concomitant]

REACTIONS (7)
  - FATIGUE [None]
  - LYMPHADENOPATHY [None]
  - PAIN [None]
  - PHARYNGOLARYNGEAL PAIN [None]
  - PHOTOSENSITIVITY REACTION [None]
  - PYREXIA [None]
  - RASH [None]
